FAERS Safety Report 24645073 (Version 1)
Quarter: 2024Q4

REPORT INFORMATION
  Report Type: Spontaneous
  Country: GB (occurrence: GB)
  Receive Date: 20241121
  Receipt Date: 20241121
  Transmission Date: 20250115
  Serious: Yes (Other)
  Sender: DR REDDYS
  Company Number: None

PATIENT
  Age: 81 Year
  Sex: Female
  Weight: 63 kg

DRUGS (5)
  1. CLOPIDOGREL [Suspect]
     Active Substance: CLOPIDOGREL BISULFATE
     Indication: Ill-defined disorder
     Dosage: TAKE ONE TABLET IN THE MORNING
     Dates: start: 20241022
  2. STRIVIT [Concomitant]
     Indication: Ill-defined disorder
     Dosage: ONCE DAILY?TPP YC - PLEASE RECLASSIFY
     Dates: start: 20221128
  3. CARBOMER [Concomitant]
     Active Substance: CARBOMER
     Indication: Ill-defined disorder
     Dosage: AS DIRECTED?TPP YC - PLEASE RECLASSIFY
     Dates: start: 20230915
  4. ATORVASTATIN [Concomitant]
     Active Substance: ATORVASTATIN
     Indication: Ill-defined disorder
     Dosage: TAKE ONE TABLET EACH NIGHT
     Dates: start: 20241022
  5. LANSOPRAZOLE [Concomitant]
     Active Substance: LANSOPRAZOLE
     Indication: Ill-defined disorder
     Dosage: TAKE ONE ONCE DAILY?TPP YC - PLEASE RECLASSIFY
     Dates: start: 20241024

REACTIONS (2)
  - Contusion [Recovered/Resolved]
  - Hypertension [Recovered/Resolved]
